FAERS Safety Report 25689759 (Version 1)
Quarter: 2025Q3

REPORT INFORMATION
  Report Type: Spontaneous
  Country: GB (occurrence: GB)
  Receive Date: 20250818
  Receipt Date: 20250818
  Transmission Date: 20251020
  Serious: Yes (Congenital Anomaly, Other)
  Sender: CELLTRION
  Company Number: None

PATIENT

DRUGS (3)
  1. USTEKINUMAB [Suspect]
     Active Substance: USTEKINUMAB
     Indication: Adverse drug reaction
     Dates: start: 2020
  2. USTEKINUMAB [Suspect]
     Active Substance: USTEKINUMAB
     Indication: Crohn^s disease
  3. FOLIC ACID [Concomitant]
     Active Substance: FOLIC ACID
     Indication: Vitamin supplementation

REACTIONS (3)
  - Stillbirth [Unknown]
  - Premature labour [Recovered/Resolved]
  - Maternal exposure during pregnancy [Unknown]
